FAERS Safety Report 20565206 (Version 1)
Quarter: 2022Q1

REPORT INFORMATION
  Report Type: Spontaneous
  Country: US (occurrence: US)
  Receive Date: 20220308
  Receipt Date: 20220308
  Transmission Date: 20220423
  Serious: Yes (Other)
  Sender: FDA-Public Use
  Company Number: US-CELLTRION INC.-2022US002435

PATIENT

DRUGS (1)
  1. TRUXIMA [Suspect]
     Active Substance: RITUXIMAB-ABBS
     Indication: Nodular lymphocyte predominant Hodgkin lymphoma
     Dosage: 885 MG EVERY WEEK FOR 42 DAYS
     Dates: start: 20220209

REACTIONS (2)
  - Nodular lymphocyte predominant Hodgkin lymphoma [Unknown]
  - Off label use [Unknown]

NARRATIVE: CASE EVENT DATE: 20220209
